FAERS Safety Report 4598635-9 (Version None)
Quarter: 2005Q1

REPORT INFORMATION
  Report Type: 
  Country: None (occurrence: None)
  Receive Date: 20050304
  Receipt Date: 20050223
  Transmission Date: 20050727
  Serious: Yes (Hospitalization)
  Sender: FDA-Public Use
  Company Number: FR-ROCHE-396590

PATIENT
  Age: 8 Year
  Sex: Female

DRUGS (3)
  1. ROCEPHIN [Suspect]
     Indication: PYELONEPHRITIS
     Route: 042
     Dates: start: 20041127
  2. BACTRIM [Concomitant]
  3. GENTALLINE [Concomitant]

REACTIONS (2)
  - FACE OEDEMA [None]
  - NASAL CONGESTION [None]
